FAERS Safety Report 21111300 (Version 4)
Quarter: 2022Q4

REPORT INFORMATION
  Report Type: Spontaneous
  Country: CL (occurrence: CL)
  Receive Date: 20220721
  Receipt Date: 20221025
  Transmission Date: 20230112
  Serious: Yes (Other)
  Sender: FDA-Public Use
  Company Number: CL-GLAXOSMITHKLINE-CL2022AMR108124

PATIENT

DRUGS (6)
  1. FLUTICASONE PROPIONATE [Suspect]
     Active Substance: FLUTICASONE PROPIONATE
     Indication: Asthma
     Dosage: 2 PUFF(S), QD
     Route: 055
     Dates: start: 20220509, end: 20220929
  2. FLUTICASONE PROPIONATE [Suspect]
     Active Substance: FLUTICASONE PROPIONATE
     Indication: Bronchitis
     Dosage: 2 PUFF(S), BID
     Dates: start: 20220921
  3. ALBUTEROL [Suspect]
     Active Substance: ALBUTEROL
     Indication: Product used for unknown indication
     Dosage: 2 PUFF(S), Z EVERY 4 HOURS
     Route: 055
     Dates: start: 2022
  4. ALBUTEROL [Suspect]
     Active Substance: ALBUTEROL
     Dosage: 2 PUFF(S), Z, SALBUTAMOL EVERY 4 HOURS.
     Dates: start: 20220921
  5. LEVOCETIRIZINE [Suspect]
     Active Substance: LEVOCETIRIZINE
     Indication: Rhinitis allergic
     Dosage: 2 ML, QD IN THE MORNING
  6. FLUTICASONE PROPIONATE\SALMETEROL XINAFOATE [Suspect]
     Active Substance: FLUTICASONE PROPIONATE\SALMETEROL XINAFOATE
     Indication: Product used for unknown indication
     Dosage: 2 PUFF(S), BID EVERY 12 HOUR
     Route: 055

REACTIONS (10)
  - Pneumonia [Recovered/Resolved]
  - Bronchitis [Unknown]
  - Lung disorder [Unknown]
  - Therapy interrupted [Unknown]
  - Illness [Unknown]
  - Tachycardia [Not Recovered/Not Resolved]
  - Oxygen saturation decreased [Unknown]
  - Blood triglycerides increased [Unknown]
  - Product use in unapproved indication [Unknown]
  - Product use issue [Unknown]

NARRATIVE: CASE EVENT DATE: 20220101
